FAERS Safety Report 9960059 (Version 2)
Quarter: 2014Q1

REPORT INFORMATION
  Report Type: Spontaneous
  Country: PR (occurrence: PR)
  Receive Date: 20140305
  Receipt Date: 20140305
  Transmission Date: 20141002
  Serious: No
  Sender: FDA-Public Use
  Company Number: PR-ABBVIE-12P-131-0996847-00

PATIENT
  Sex: Female
  Weight: 46.76 kg

DRUGS (5)
  1. HUMIRA [Suspect]
     Indication: RHEUMATOID ARTHRITIS
     Route: 058
     Dates: start: 201210, end: 201210
  2. HUMIRA [Suspect]
     Route: 058
  3. SYNTHROID [Concomitant]
     Indication: THYROID DISORDER
     Route: 048
  4. SULINDAC (CLINIORIL) [Concomitant]
     Indication: RHEUMATOID ARTHRITIS
     Route: 048
  5. AZULFIDINE [Concomitant]
     Indication: RHEUMATOID ARTHRITIS
     Route: 048

REACTIONS (1)
  - Nasopharyngitis [Recovered/Resolved]
